FAERS Safety Report 8394660-0 (Version None)
Quarter: 2012Q2

REPORT INFORMATION
  Report Type: 
  Country: None (occurrence: None)
  Receive Date: 20120530
  Receipt Date: 20120524
  Transmission Date: 20120825
  Serious: Yes (Life-Threatening)
  Sender: FDA-Public Use
  Company Number: DE-PFIZER INC-2012125336

PATIENT
  Age: 61 Year
  Sex: Male
  Weight: 90 kg

DRUGS (4)
  1. ASPIRIN [Concomitant]
     Indication: CORONARY ARTERY DISEASE
     Dosage: 100 MG, UNK (PERMANENT MEDICATION)
     Route: 048
  2. AMPICILLIN AND SULBACTAM [Suspect]
     Indication: STAPHYLOCOCCAL INFECTION
     Dosage: 3 G, 3X/DAY, CUMULATIVE DOSE NUMBER (TO FIRST REACTION): 45 G
     Route: 042
     Dates: start: 20111107, end: 20111111
  3. STAPHYLEX [Concomitant]
     Indication: STAPHYLOCOCCAL INFECTION
     Dosage: 1 G, 3X/DAY (CUMULATIVE DOSE NUMBER (TO FIRST REACTION): 12 G
     Route: 042
     Dates: start: 20111109, end: 20111113
  4. CLOPIDOGREL [Concomitant]
     Indication: ANGIOPLASTY
     Dosage: 75 MG, UNK (PERMANENT MEDICATION)
     Route: 048

REACTIONS (2)
  - DRUG ERUPTION [None]
  - ACUTE GENERALISED EXANTHEMATOUS PUSTULOSIS [None]
